FAERS Safety Report 9510098 (Version 1)
Quarter: 2013Q3

REPORT INFORMATION
  Report Type: Spontaneous
  Country: US (occurrence: US)
  Receive Date: 20130909
  Receipt Date: 20130909
  Transmission Date: 20140515
  Serious: No
  Sender: FDA-Public Use
  Company Number: US-BRISTOL-MYERS SQUIBB COMPANY-18769786

PATIENT
  Age: 6 Year
  Sex: Male

DRUGS (5)
  1. ABILIFY [Suspect]
     Indication: ABNORMAL BEHAVIOUR
     Dates: start: 20130404
  2. ABILIFY [Suspect]
     Indication: ANXIETY
     Dates: start: 20130404
  3. CONCERTA [Concomitant]
  4. CLONIDINE HCL [Concomitant]
  5. PERIACTIN [Concomitant]

REACTIONS (4)
  - Vision blurred [Unknown]
  - Headache [Unknown]
  - Insomnia [Unknown]
  - Abdominal pain upper [Unknown]
